FAERS Safety Report 15568976 (Version 2)
Quarter: 2018Q4

REPORT INFORMATION
  Report Type: Spontaneous
  Country: US (occurrence: US)
  Receive Date: 20181031
  Receipt Date: 20181102
  Transmission Date: 20190205
  Serious: Yes (Other)
  Sender: FDA-Public Use
  Company Number: US-RECKITT BENCKISER HEALTHCARE INT LIMITED-RB-92963-2018

PATIENT
  Age: 69 Year
  Sex: Female

DRUGS (1)
  1. LANACANE MAXIMUM STRENGTH ANTI-ITCH [Suspect]
     Active Substance: BENZETHONIUM CHLORIDE\BENZOCAINE
     Indication: ARTHROPOD BITE
     Dosage: UNK, APPLY A SMALL AMOUNT
     Route: 061
     Dates: start: 20181023

REACTIONS (6)
  - Asthenia [Recovered/Resolved]
  - Adverse reaction [Recovered/Resolved]
  - Hallucination [Recovered/Resolved]
  - Loss of consciousness [Recovered/Resolved]
  - Hyperhidrosis [Recovered/Resolved]
  - Tremor [Recovered/Resolved]

NARRATIVE: CASE EVENT DATE: 20181023
